FAERS Safety Report 7582285-6 (Version None)
Quarter: 2011Q2

REPORT INFORMATION
  Report Type: 
  Country: None (occurrence: None)
  Receive Date: 20110630
  Receipt Date: 20110617
  Transmission Date: 20111010
  Serious: Yes (Hospitalization, Disabling)
  Sender: FDA-Public Use
  Company Number: US-BAYER-201032006NA

PATIENT
  Age: 40 Year
  Sex: Female
  Weight: 114 kg

DRUGS (3)
  1. ASPIRIN [Concomitant]
  2. YAZ [Suspect]
     Indication: ORAL CONTRACEPTION
     Dates: start: 20080401, end: 20090501
  3. YASMIN [Suspect]
     Dates: start: 20070402, end: 20070411

REACTIONS (9)
  - AMNESIA [None]
  - BASAL GANGLIA INFARCTION [None]
  - MOTOR DYSFUNCTION [None]
  - OEDEMA [None]
  - APHASIA [None]
  - OEDEMA PERIPHERAL [None]
  - HEMIPLEGIA [None]
  - DEEP VEIN THROMBOSIS [None]
  - HEMIPARESIS [None]
